FAERS Safety Report 9867824 (Version 2)
Quarter: 2014Q1

REPORT INFORMATION
  Report Type: Spontaneous
  Country: NL (occurrence: NL)
  Receive Date: 20140204
  Receipt Date: 20140219
  Transmission Date: 20141002
  Serious: Yes (Hospitalization)
  Sender: FDA-Public Use
  Company Number: NL-WATSON-2014-01060

PATIENT
  Age: 78 Year
  Sex: Male
  Weight: 68 kg

DRUGS (1)
  1. OMEPRAZOL ACTAVIS [Suspect]
     Indication: ABDOMINAL DISCOMFORT
     Dosage: 20 MG, DAILY - 1 KEER PER DAG 1 STUK(S)
     Route: 048
     Dates: start: 2012, end: 2013

REACTIONS (1)
  - Cardiac disorder [Recovered/Resolved]
